FAERS Safety Report 8984615 (Version 1)
Quarter: 2012Q4

REPORT INFORMATION
  Report Type: 
  Country: US (occurrence: US)
  Receive Date: 20121226
  Receipt Date: 20121226
  Transmission Date: 20130627
  Serious: Yes (Death, Hospitalization, Other)
  Sender: FDA-Public Use
  Company Number: US-ELI_LILLY_AND_COMPANY-US201212005730

PATIENT
  Age: 61 Year
  Sex: Male

DRUGS (1)
  1. HUMULIN REGULAR [Suspect]
     Indication: TYPE 2 DIABETES MELLITUS
     Dosage: UNK
     Dates: end: 20120618

REACTIONS (4)
  - Death [Fatal]
  - Cardiac disorder [Not Recovered/Not Resolved]
  - Cardiac complication associated with device [Not Recovered/Not Resolved]
  - Furuncle [Not Recovered/Not Resolved]
